FAERS Safety Report 10345345 (Version 3)
Quarter: 2014Q3

REPORT INFORMATION
  Report Type: Spontaneous
  Country: JP (occurrence: JP)
  Receive Date: 20140728
  Receipt Date: 20140825
  Transmission Date: 20150326
  Serious: Yes (Hospitalization, Other)
  Sender: FDA-Public Use
  Company Number: PHHY2014JP091711

PATIENT
  Age: 3 Year
  Sex: Female

DRUGS (3)
  1. NEORAL [Suspect]
     Active Substance: CYCLOSPORINE
     Indication: NEPHROTIC SYNDROME
     Dosage: 60 MG, DAILY
     Route: 048
     Dates: start: 20121009, end: 20121213
  2. RITUXAN [Suspect]
     Active Substance: RITUXIMAB
     Dosage: 250 MG, DAILY
     Route: 041
     Dates: start: 20121112
  3. PREDONINE [Concomitant]
     Active Substance: PREDNISOLONE\PREDNISOLONE ACETATE\PREDNISOLONE SODIUM SUCCINATE
     Dosage: 12 MG, UNK
     Route: 042
     Dates: start: 20120802, end: 20130119

REACTIONS (7)
  - Acute respiratory distress syndrome [Recovering/Resolving]
  - Pyrexia [Recovering/Resolving]
  - Respiratory disorder [Recovering/Resolving]
  - Pulmonary oedema [Recovering/Resolving]
  - Blood osmolarity decreased [Recovering/Resolving]
  - Hypoproteinaemia [Recovering/Resolving]
  - Pneumocystis jirovecii pneumonia [Recovered/Resolved]

NARRATIVE: CASE EVENT DATE: 20121211
